FAERS Safety Report 25034079 (Version 1)
Quarter: 2025Q1

REPORT INFORMATION
  Report Type: Spontaneous
  Country: JP (occurrence: JP)
  Receive Date: 20250304
  Receipt Date: 20250304
  Transmission Date: 20250409
  Serious: Yes (Hospitalization, Other)
  Sender: Haleon PLC
  Company Number: JP-002147023-NVSJ2024JP013736

PATIENT
  Age: 87 Year
  Sex: Male

DRUGS (1)
  1. VOLTAREN [Suspect]
     Active Substance: DICLOFENAC SODIUM
     Indication: Product used for unknown indication
     Dosage: (DICLOFENAC SODIUM) TABLET, REGIMEN #1, THERAPY DURATION: UNKNOWN, THERAPY DATES: UNKNOWN, DOSE O...
     Route: 048

REACTIONS (8)
  - Acquired ATTR amyloidosis [Unknown]
  - Small intestine ulcer [Recovering/Resolving]
  - Large intestinal ulcer [Recovering/Resolving]
  - Diarrhoea [Unknown]
  - Abdominal pain [Unknown]
  - Gastrointestinal oedema [Unknown]
  - Haematochezia [Recovered/Resolved]
  - Small intestinal perforation [Unknown]
